FAERS Safety Report 20245314 (Version 1)
Quarter: 2021Q4

REPORT INFORMATION
  Report Type: Spontaneous
  Country: US (occurrence: US)
  Receive Date: 20211229
  Receipt Date: 20211229
  Transmission Date: 20220304
  Serious: No
  Sender: FDA-Public Use
  Company Number: US-CELLTRION INC.-2021US013544

PATIENT

DRUGS (3)
  1. TRUXIMA [Suspect]
     Active Substance: RITUXIMAB-ABBS
     Indication: Polymyositis
     Dosage: 4 ONCE A WEEK FOR ONE MONTH
     Dates: start: 20210901
  2. TRUXIMA [Suspect]
     Active Substance: RITUXIMAB-ABBS
     Indication: Myopathy
     Dosage: 4 ONCE A WEEK FOR ONE MONTH
     Dates: start: 20211001
  3. TRUXIMA [Suspect]
     Active Substance: RITUXIMAB-ABBS
     Indication: Osteonecrosis

REACTIONS (1)
  - Off label use [Unknown]

NARRATIVE: CASE EVENT DATE: 20210901
